FAERS Safety Report 14686860 (Version 1)
Quarter: 2018Q1

REPORT INFORMATION
  Report Type: Spontaneous
  Country: IT (occurrence: IT)
  Receive Date: 20180327
  Receipt Date: 20180327
  Transmission Date: 20180509
  Serious: Yes (Hospitalization)
  Sender: FDA-Public Use
  Company Number: IT-GILEAD-2018-0328973

PATIENT
  Age: 43 Year
  Sex: Male

DRUGS (2)
  1. GENVOYA [Suspect]
     Active Substance: COBICISTAT\ELVITEGRAVIR\EMTRICITABINE\TENOFOVIR ALAFENAMIDE FUMARATE
     Indication: HIV INFECTION
     Dosage: UNK
     Route: 065
     Dates: start: 201702
  2. CORTONE ACETATO [Concomitant]
     Active Substance: CORTISONE ACETATE

REACTIONS (2)
  - Ill-defined disorder [Recovering/Resolving]
  - Periarthritis [Recovering/Resolving]

NARRATIVE: CASE EVENT DATE: 201801
